FAERS Safety Report 7743578-2 (Version None)
Quarter: 2011Q3

REPORT INFORMATION
  Report Type: 
  Country: None (occurrence: None)
  Receive Date: 20110912
  Receipt Date: 20110906
  Transmission Date: 20111222
  Serious: Yes (Life-Threatening, Hospitalization, Other)
  Sender: FDA-Public Use
  Company Number: US-ASTRAZENECA-2011SE32379

PATIENT
  Age: 90 Year
  Sex: Female

DRUGS (4)
  1. NEXIUM [Suspect]
     Route: 048
  2. MORPHINE [Concomitant]
  3. CRESTOR [Concomitant]
     Route: 048
  4. TOPROL-XL [Suspect]
     Route: 048

REACTIONS (29)
  - MYOCARDIAL INFARCTION [None]
  - MOBILITY DECREASED [None]
  - DIABETES MELLITUS [None]
  - CHEST PAIN [None]
  - BLINDNESS UNILATERAL [None]
  - NEOPLASM MALIGNANT [None]
  - SPEECH DISORDER [None]
  - ROAD TRAFFIC ACCIDENT [None]
  - INTERVERTEBRAL DISC DEGENERATION [None]
  - FALL [None]
  - VAGINAL NEOPLASM [None]
  - RECTAL NEOPLASM [None]
  - GLAUCOMA [None]
  - DYSPNOEA [None]
  - VISUAL IMPAIRMENT [None]
  - OESOPHAGEAL DISORDER [None]
  - PAIN [None]
  - OVARIAN CYST [None]
  - MENTAL DISORDER [None]
  - VISUAL ACUITY REDUCED [None]
  - TERMINAL STATE [None]
  - PANCREATIC CARCINOMA [None]
  - HERPES ZOSTER [None]
  - BREAST CYST [None]
  - GAIT DISTURBANCE [None]
  - OSTEOPOROSIS [None]
  - ASTHENIA [None]
  - MALAISE [None]
  - DRUG DOSE OMISSION [None]
